FAERS Safety Report 4498177-5 (Version None)
Quarter: 2004Q4

REPORT INFORMATION
  Report Type: 
  Country: None (occurrence: None)
  Receive Date: 20041110
  Receipt Date: 20041105
  Transmission Date: 20050328
  Serious: Yes (Disabling)
  Sender: FDA-Public Use
  Company Number: DE-MERCK-0411DEU00109

PATIENT
  Age: 52 Year
  Sex: Female

DRUGS (4)
  1. VIOXX [Suspect]
     Indication: ARTHRALGIA
     Route: 048
     Dates: start: 20020101
  2. MOLSIDOMINE [Concomitant]
     Indication: ANGINA PECTORIS
     Route: 065
     Dates: start: 20020101
  3. ISOSORBIDE MONONITRATE [Concomitant]
     Indication: ANGINA PECTORIS
     Route: 065
     Dates: start: 20020101
  4. ASPIRIN [Concomitant]
     Indication: ANGINA PECTORIS
     Route: 065
     Dates: start: 20020101

REACTIONS (4)
  - ANGINA PECTORIS [None]
  - ASTHENIA [None]
  - EXERCISE CAPACITY DECREASED [None]
  - SYNCOPE [None]
